FAERS Safety Report 7784537-3 (Version None)
Quarter: 2011Q3

REPORT INFORMATION
  Report Type: 
  Country: None (occurrence: None)
  Receive Date: 20110928
  Receipt Date: 20110922
  Transmission Date: 20111222
  Serious: Yes (Death, Hospitalization)
  Sender: FDA-Public Use
  Company Number: US-US-EMD SERONO, INC.-7077451

PATIENT
  Sex: Female

DRUGS (2)
  1. ANTI SEIZURE MEDICATION [Concomitant]
     Indication: CONVULSION
  2. REBIF [Suspect]
     Indication: MULTIPLE SCLEROSIS
     Route: 058
     Dates: start: 20110721, end: 20110831

REACTIONS (7)
  - GRAND MAL CONVULSION [None]
  - LOSS OF CONSCIOUSNESS [None]
  - MUSCULAR WEAKNESS [None]
  - INFLUENZA [None]
  - HYPOAESTHESIA [None]
  - HEAT STROKE [None]
  - PAIN IN EXTREMITY [None]
